FAERS Safety Report 10210769 (Version 1)
Quarter: 2014Q2

REPORT INFORMATION
  Report Type: Spontaneous
  Country: US (occurrence: US)
  Receive Date: 20140602
  Receipt Date: 20140602
  Transmission Date: 20141212
  Serious: No
  Sender: FDA-Public Use
  Company Number: US-B.I. PHARMACEUTICALS,INC./RIDGEFIELD-2014-BI-22340BP

PATIENT
  Sex: Female

DRUGS (4)
  1. TRADJENTA [Suspect]
     Indication: PRODUCT USED FOR UNKNOWN INDICATION
     Route: 065
  2. METFORMIN [Concomitant]
     Dosage: 2000 MG
     Route: 065
  3. AMARYL [Concomitant]
     Dosage: 4 MG
     Route: 065
  4. VICTOZA [Concomitant]
     Route: 065

REACTIONS (1)
  - Blood glucose increased [Unknown]
